FAERS Safety Report 6057537-1 (Version None)
Quarter: 2009Q1

REPORT INFORMATION
  Report Type: 
  Country: None (occurrence: None)
  Receive Date: 20090129
  Receipt Date: 20090120
  Transmission Date: 20090719
  Serious: Yes (Other)
  Sender: FDA-Public Use
  Company Number: AU-KINGPHARMUSA00001-K200900048

PATIENT
  Age: 82 Year
  Sex: Male

DRUGS (16)
  1. SEPTRA [Suspect]
     Indication: STENOTROPHOMONAS INFECTION
     Dosage: 2 DF (800 MG/160 MG), BID
  2. SEPTRA [Suspect]
     Dosage: 1 DF (800 MG/160 MG), BID
  3. AMPICILLIN SODIUM [Concomitant]
     Indication: EVIDENCE BASED TREATMENT
     Dosage: 1 G, QID
     Route: 042
  4. PIPERACILLIN SODIUM AND TAZOBACTAM SODIUM [Concomitant]
     Indication: EVIDENCE BASED TREATMENT
     Dosage: 4 G/0.5 G, Q8H
     Route: 042
  5. CEFEPIME [Concomitant]
     Indication: PNEUMONIA STAPHYLOCOCCAL
     Dosage: 2 G, BID
     Route: 042
  6. CEFEPIME [Concomitant]
     Indication: SERRATIA INFECTION
  7. ESOMEPRAZOLE [Concomitant]
     Dosage: 20 MG, QD
     Route: 042
  8. OMEPRAZOLE [Concomitant]
     Indication: DEPRESSION
     Dosage: 20 MG, BID
     Route: 042
  9. OMEPRAZOLE [Concomitant]
     Dosage: UNKNOWN AMOUNT
  10. VENLAFAXINE [Concomitant]
     Indication: DEPRESSION
     Dosage: 37.5 MG, QD
     Route: 048
  11. VENLAFAXINE [Concomitant]
     Dosage: 75 MG, BID
     Route: 048
  12. VENLAFAXINE [Concomitant]
     Dosage: 150 MG, QD
     Route: 048
  13. THIAMINE HCL [Concomitant]
     Indication: PROPHYLAXIS
     Dosage: 100 MG, QD
     Route: 048
  14. MULTIVITAMIN                       /00831701/ [Concomitant]
     Dosage: 1 DF, QD
     Route: 048
  15. HEPARIN SODIUM [Concomitant]
     Dosage: 5000 U, BID
     Route: 058
  16. ESCITALOPRAM [Concomitant]
     Indication: DEPRESSION
     Dosage: UNKNOWN AMOUNT

REACTIONS (9)
  - APRAXIA [None]
  - BALANCE DISORDER [None]
  - DELIRIUM [None]
  - DISORIENTATION [None]
  - DYSSTASIA [None]
  - FALL [None]
  - GAIT DISTURBANCE [None]
  - ILLUSION [None]
  - NORMOCHROMIC NORMOCYTIC ANAEMIA [None]
